FAERS Safety Report 25814084 (Version 4)
Quarter: 2025Q4

REPORT INFORMATION
  Report Type: Spontaneous
  Country: CO (occurrence: CO)
  Receive Date: 20250917
  Receipt Date: 20251114
  Transmission Date: 20260117
  Serious: No
  Sender: PFIZER
  Company Number: CO-PFIZER INC-PV202500108338

PATIENT
  Age: 8 Year
  Sex: Male
  Weight: 22 kg

DRUGS (1)
  1. GENOTROPIN [Suspect]
     Active Substance: SOMATROPIN
     Indication: Growth disorder
     Dosage: 1 MG, DAILY

REACTIONS (2)
  - Off label use [Unknown]
  - Needle issue [Unknown]
